FAERS Safety Report 20929358 (Version 2)
Quarter: 2022Q3

REPORT INFORMATION
  Report Type: Spontaneous
  Country: GB (occurrence: GB)
  Receive Date: 20220608
  Receipt Date: 20220704
  Transmission Date: 20221026
  Serious: Yes (Other)
  Sender: FDA-Public Use
  Company Number: GB-Crescent Pharma Limited-CRS202204-000138

PATIENT
  Age: 67 Year
  Sex: Female

DRUGS (3)
  1. METRONIDAZOLE [Suspect]
     Active Substance: METRONIDAZOLE
     Indication: Tooth abscess
     Dosage: 1 {DF}, 200MG TABLETS(ONE DRUG OF 200MG)
     Route: 048
     Dates: start: 20210622
  2. BISOPROLOL [Concomitant]
     Active Substance: BISOPROLOL
     Indication: Blood pressure measurement
     Dosage: 5 MG, QD (5 MG ONCE A DAY SINCE A LONG TIME)
     Route: 065
  3. DOSULEPIN HYDROCHLORIDE [Concomitant]
     Active Substance: DOTHIEPIN HYDROCHLORIDE
     Indication: Tooth disorder
     Dosage: 25 MG, 2 OR 3 IN THE EVENING SINCE A LONG TIME
     Route: 065

REACTIONS (17)
  - Peripheral paralysis [Unknown]
  - Pain [Unknown]
  - Fatigue [Unknown]
  - Dysarthria [Recovered/Resolved]
  - Loss of consciousness [Unknown]
  - Spinal fracture [Unknown]
  - Fall [Unknown]
  - Loss of personal independence in daily activities [Unknown]
  - Feeling abnormal [Unknown]
  - Groin pain [Unknown]
  - Condition aggravated [Unknown]
  - Mental impairment [Unknown]
  - Sleep disorder [Not Recovered/Not Resolved]
  - Illness [Unknown]
  - Depression [Unknown]
  - Dysstasia [Unknown]
  - Dizziness [Recovered/Resolved]

NARRATIVE: CASE EVENT DATE: 20210623
